FAERS Safety Report 4635022-9 (Version None)
Quarter: 2005Q2

REPORT INFORMATION
  Report Type: 
  Country: None (occurrence: None)
  Receive Date: 20050414
  Receipt Date: 20050401
  Transmission Date: 20051028
  Serious: Yes (Life-Threatening, Hospitalization)
  Sender: FDA-Public Use
  Company Number: IT-JNJFOC-20050401365

PATIENT
  Sex: Male

DRUGS (4)
  1. REMICADE [Suspect]
     Dosage: 3RD INFUSION.
     Route: 042
  2. REMICADE [Suspect]
     Indication: PSORIASIS
     Dosage: 2ND INFUSION.
     Route: 042
  3. REMICADE [Suspect]
     Route: 042
  4. GLUTATHYON [Concomitant]
     Dosage: 250CC OF PHYSIOLOGICAL SOLUTION.

REACTIONS (2)
  - CEREBRAL HAEMORRHAGE [None]
  - INTRACRANIAL ANEURYSM [None]
